FAERS Safety Report 18400761 (Version 1)
Quarter: 2020Q4

REPORT INFORMATION
  Report Type: Spontaneous
  Country: US (occurrence: US)
  Receive Date: 20201019
  Receipt Date: 20201019
  Transmission Date: 20210114
  Serious: No
  Sender: FDA-Public Use
  Company Number: US-MYLANLABS-2020M1087337

PATIENT
  Sex: Female

DRUGS (1)
  1. CARBIDOPA AND LEVODOPA EXTENDED-RELEASE TABLETS [Suspect]
     Active Substance: CARBIDOPA\LEVODOPA
     Indication: TREMOR
     Dosage: UNK
     Route: 048

REACTIONS (1)
  - Hypotension [Not Recovered/Not Resolved]
